FAERS Safety Report 21575815 (Version 1)
Quarter: 2022Q4

REPORT INFORMATION
  Report Type: Other
  Country: CA (occurrence: CA)
  Receive Date: 20221110
  Receipt Date: 20221110
  Transmission Date: 20230112
  Serious: Yes (Hospitalization, Other)
  Sender: FDA-Public Use
  Company Number: CA-CELLTRION INC.-2022CA018540

PATIENT

DRUGS (9)
  1. RITUXIMAB [Suspect]
     Active Substance: RITUXIMAB
     Indication: Granulomatosis with polyangiitis
     Dosage: 500 MILLIGRAM
     Route: 042
  2. ACETAMINOPHEN [Concomitant]
     Active Substance: ACETAMINOPHEN
     Indication: Premedication
     Dosage: 650 MILLIGRAM
     Route: 048
  3. BENADRYL [Concomitant]
     Active Substance: DIPHENHYDRAMINE HYDROCHLORIDE
     Indication: Premedication
     Dosage: 50 MILLIGRAM
  4. CALCIUM [Concomitant]
     Active Substance: CALCIUM
  5. METHOTREXATE [Concomitant]
     Active Substance: METHOTREXATE
     Route: 037
  6. MYRBETRIQ [Concomitant]
     Active Substance: MIRABEGRON
     Indication: Bladder disorder
  7. PREDNISONE [Concomitant]
     Active Substance: PREDNISONE
  8. SOLU-MEDROL [Concomitant]
     Active Substance: METHYLPREDNISOLONE SODIUM SUCCINATE
     Indication: Premedication
     Dosage: 100 MILLIGRAM
     Route: 042
  9. SULFATRIM [Concomitant]
     Active Substance: SULFAMETHOXAZOLE\TRIMETHOPRIM
     Indication: Prophylaxis

REACTIONS (7)
  - Vasculitis [Unknown]
  - Pulmonary thrombosis [Unknown]
  - Pulmonary mass [Unknown]
  - Hepatic mass [Unknown]
  - Balance disorder [Unknown]
  - Diarrhoea [Unknown]
  - Infection [Unknown]
